FAERS Safety Report 5647691-5 (Version None)
Quarter: 2008Q1

REPORT INFORMATION
  Report Type: 
  Country: None (occurrence: None)
  Receive Date: 20080303
  Receipt Date: 20080227
  Transmission Date: 20080703
  Serious: Yes (Death, Life-Threatening, Hospitalization)
  Sender: FDA-Public Use
  Company Number: CA-PFIZER INC-2007098020

PATIENT
  Sex: Female
  Weight: 83 kg

DRUGS (19)
  1. SU-011,248 [Suspect]
     Indication: BREAST CANCER
     Route: 048
     Dates: start: 20070829, end: 20071119
  2. TRASTUZUMAB [Suspect]
     Indication: BREAST CANCER
     Route: 042
  3. TRASTUZUMAB [Suspect]
     Route: 042
  4. SYNTHROID [Concomitant]
     Dosage: DAILY DOSE:.125MG
     Route: 048
     Dates: start: 19890101, end: 20071101
  5. VITAMIN CAP [Concomitant]
     Dosage: FREQ:1 TABLET DAILY
     Route: 048
     Dates: start: 20000101, end: 20071101
  6. ASCORBIC ACID [Concomitant]
     Dosage: DAILY DOSE:1000MG
     Route: 048
     Dates: start: 19850101, end: 20071101
  7. VITAMIN E [Concomitant]
     Dosage: DAILY DOSE:400I.U.
     Route: 048
     Dates: start: 20000101, end: 20071101
  8. LINSEED [Concomitant]
     Route: 048
     Dates: start: 20000101, end: 20071101
  9. ASPIRIN [Concomitant]
     Dosage: DAILY DOSE:81MG
     Route: 048
     Dates: start: 20060501, end: 20071101
  10. LIPITOR [Concomitant]
     Dosage: DAILY DOSE:10MG
     Route: 048
     Dates: start: 20070701, end: 20071101
  11. TYLENOL (CAPLET) [Concomitant]
     Dosage: FREQ:1-2 TABLETS AS NECESSARY
     Route: 048
     Dates: start: 20070901, end: 20071101
  12. PARIET [Concomitant]
     Dosage: DAILY DOSE:10MG
     Route: 048
     Dates: start: 20071121, end: 20071101
  13. BAKING SODA [Concomitant]
     Dosage: FREQ:AS NECESSARY
     Route: 048
     Dates: start: 20070926, end: 20071101
  14. ATIVAN [Concomitant]
     Dosage: FREQ:AS NECESSARY
     Route: 048
     Dates: start: 20061101, end: 20071101
  15. AMOXICILLIN [Concomitant]
     Route: 048
     Dates: start: 20071022, end: 20071029
  16. FUCIDINE CAP [Concomitant]
     Route: 061
     Dates: start: 20071114, end: 20071101
  17. TOBRADEX [Concomitant]
     Route: 047
     Dates: start: 20071114, end: 20071101
  18. SODIUM CHLORIDE [Concomitant]
     Route: 042
     Dates: start: 20071121, end: 20071121
  19. CALCIUM W/MAGNESIUM [Concomitant]
     Route: 048
     Dates: start: 20000101, end: 20071101

REACTIONS (2)
  - CARDIOGENIC SHOCK [None]
  - MULTI-ORGAN FAILURE [None]
